FAERS Safety Report 17238368 (Version 1)
Quarter: 2019Q4

REPORT INFORMATION
  Report Type: Spontaneous
  Country: US (occurrence: US)
  Receive Date: 20191211
  Receipt Date: 20191211
  Transmission Date: 20200122
  Serious: Yes (Hospitalization)
  Sender: FDA-Public Use
  Company Number: None

PATIENT
  Age: 70 Year
  Sex: Female

DRUGS (14)
  1. LEVOFLOXACIN TAB [Concomitant]
  2. ESCITALOPRAM TAB [Concomitant]
  3. MORPHINE SUL TAB [Concomitant]
  4. METOPROLOL SUL TAB [Concomitant]
  5. LACTULOSE SOL [Concomitant]
  6. PROLIA [Suspect]
     Active Substance: DENOSUMAB
     Dosage: ?          OTHER FREQUENCY:EVERY 6 MONTHS;?
     Route: 058
     Dates: start: 20180411
  7. ONDANSERTON TAB [Concomitant]
  8. HYDROCO/APA TAB [Concomitant]
  9. CYANOCOBALAM INJ [Concomitant]
  10. FUROSEMIDE TAB [Concomitant]
  11. PROCTOZONE CRE-HC [Concomitant]
  12. ALBUTEROL NEB [Concomitant]
     Active Substance: ALBUTEROL
  13. LIDOCAINE PAD [Concomitant]
  14. PREDNISONE TAB [Concomitant]
     Active Substance: PREDNISONE

REACTIONS (1)
  - Condition aggravated [None]
